FAERS Safety Report 15389910 (Version 1)
Quarter: 2018Q3

REPORT INFORMATION
  Report Type: Spontaneous
  Country: US (occurrence: US)
  Receive Date: 20180907
  Receipt Date: 20180907
  Transmission Date: 20181010
  Serious: Yes (Hospitalization)
  Sender: FDA-Public Use
  Company Number: None

PATIENT
  Age: 70 Year
  Sex: Female
  Weight: 82.35 kg

DRUGS (14)
  1. FUROSEMIDE. [Concomitant]
     Active Substance: FUROSEMIDE
  2. SERTRALINE [Concomitant]
     Active Substance: SERTRALINE HYDROCHLORIDE
  3. AMITRIPTYLINE [Concomitant]
     Active Substance: AMITRIPTYLINE
  4. DILTIAZEM. [Concomitant]
     Active Substance: DILTIAZEM
  5. LYRICA [Concomitant]
     Active Substance: PREGABALIN
  6. VESICARE [Concomitant]
     Active Substance: SOLIFENACIN SUCCINATE
  7. LANTUS [Concomitant]
     Active Substance: INSULIN GLARGINE
  8. LEVOTHYROXINE. [Concomitant]
     Active Substance: LEVOTHYROXINE
  9. IMATINIB [Suspect]
     Active Substance: IMATINIB
     Route: 048
     Dates: start: 20170803
  10. CRESTOR [Concomitant]
     Active Substance: ROSUVASTATIN CALCIUM
  11. ONDANSETRON [Concomitant]
     Active Substance: ONDANSETRON
  12. HYDROCODONE BITARTRATE AND ACETAMINOPHEN [Concomitant]
     Active Substance: ACETAMINOPHEN\HYDROCODONE BITARTRATE
  13. NEXIUM [Concomitant]
     Active Substance: ESOMEPRAZOLE MAGNESIUM
  14. TRULICITY [Concomitant]
     Active Substance: DULAGLUTIDE

REACTIONS (1)
  - Blood glucose increased [None]

NARRATIVE: CASE EVENT DATE: 20180907
